FAERS Safety Report 25710188 (Version 2)
Quarter: 2025Q4

REPORT INFORMATION
  Report Type: Spontaneous
  Country: EU (occurrence: EU)
  Receive Date: 20250821
  Receipt Date: 20251007
  Transmission Date: 20260117
  Serious: Yes (Hospitalization)
  Sender: RANBAXY
  Company Number: EU-AFSSAPS-RN2025000390

PATIENT
  Age: 75 Year
  Sex: Female
  Weight: 66 kg

DRUGS (3)
  1. OLANZAPINE [Suspect]
     Active Substance: OLANZAPINE
     Indication: Bipolar I disorder
     Dosage: 20 MG IN THE EVENING
     Route: 048
     Dates: start: 20250217, end: 20250409
  2. LITHIUM [Suspect]
     Active Substance: LITHIUM
     Indication: Bipolar I disorder
     Dosage: 800 MG IN THE EVENING
     Route: 048
     Dates: start: 20250217, end: 20250409
  3. LAMOTRIGINE [Suspect]
     Active Substance: LAMOTRIGINE
     Indication: Bipolar I disorder
     Dosage: GRADUAL INCREASE OF DOSES UP TO 350 MG
     Route: 048
     Dates: start: 20250224, end: 20250409

REACTIONS (2)
  - Rash maculo-papular [Recovering/Resolving]
  - Drug reaction with eosinophilia and systemic symptoms [Recovering/Resolving]

NARRATIVE: CASE EVENT DATE: 20250325
